FAERS Safety Report 7679739-0 (Version None)
Quarter: 2011Q3

REPORT INFORMATION
  Report Type: 
  Country: None (occurrence: None)
  Receive Date: 20110808
  Receipt Date: 20110725
  Transmission Date: 20111222
  Serious: Yes (Hospitalization, Other)
  Sender: FDA-Public Use
  Company Number: TPA2011A04026

PATIENT
  Age: 55 Year
  Sex: Male
  Weight: 129.2752 kg

DRUGS (9)
  1. ACTOS [Suspect]
     Indication: TYPE 2 DIABETES MELLITUS
     Dosage: 45 MG, PER ORAL
     Route: 048
     Dates: start: 20080407, end: 20110622
  2. JANUMET [Concomitant]
  3. ASPIRIN [Concomitant]
  4. PRAVASTATIN [Concomitant]
  5. HUMOLOG MIX (INSULIN LISPRO) [Concomitant]
  6. GLIMEPIRIDE [Concomitant]
  7. PENOFIBRATE (FENOFIBRATE) [Concomitant]
  8. FLOMAX [Concomitant]
  9. CITALOPRAM HYDROBROMIDE [Concomitant]

REACTIONS (1)
  - TRANSITIONAL CELL CARCINOMA [None]
